FAERS Safety Report 5202079-6 (Version None)
Quarter: 2007Q1

REPORT INFORMATION
  Report Type: 
  Country: None (occurrence: None)
  Receive Date: 20070109
  Receipt Date: 20070102
  Transmission Date: 20070707
  Serious: Yes (Life-Threatening, Hospitalization, Disabling)
  Sender: FDA-Public Use
  Company Number: US-AMGEN-STX203760

PATIENT
  Sex: Female
  Weight: 91.7 kg

DRUGS (9)
  1. ENBREL [Suspect]
     Indication: RHEUMATOID ARTHRITIS
     Route: 058
     Dates: start: 20041006, end: 20061125
  2. FELDENE [Concomitant]
  3. INSULIN [Concomitant]
  4. SYNTHROID [Concomitant]
  5. NEXIUM [Concomitant]
  6. REGLAN [Concomitant]
  7. WELLBUTRIN [Concomitant]
  8. CYMBALTA [Concomitant]
  9. ASPIRIN [Concomitant]

REACTIONS (4)
  - CARDIAC FAILURE CONGESTIVE [None]
  - DIABETIC CARDIOMYOPATHY [None]
  - EJECTION FRACTION DECREASED [None]
  - IMPLANTABLE DEFIBRILLATOR REPLACEMENT [None]
